FAERS Safety Report 7510259-X (Version None)
Quarter: 2011Q2

REPORT INFORMATION
  Report Type: 
  Country: None (occurrence: None)
  Receive Date: 20110527
  Receipt Date: 20110518
  Transmission Date: 20111010
  Serious: Yes (Other)
  Sender: FDA-Public Use
  Company Number: US-ASTRAZENECA-2010SE60142

PATIENT
  Age: 81 Year
  Sex: Female

DRUGS (1)
  1. ARIMIDEX [Suspect]
     Route: 048

REACTIONS (10)
  - PNEUMONIA [None]
  - CHEST PAIN [None]
  - LUNG NEOPLASM [None]
  - NASAL CONGESTION [None]
  - COUGH [None]
  - DYSPNOEA [None]
  - MULTIPLE ALLERGIES [None]
  - NASOPHARYNGITIS [None]
  - DECREASED APPETITE [None]
  - STARVATION [None]
